FAERS Safety Report 18599431 (Version 1)
Quarter: 2020Q4

REPORT INFORMATION
  Report Type: Spontaneous
  Country: JP (occurrence: JP)
  Receive Date: 20201210
  Receipt Date: 20201210
  Transmission Date: 20210114
  Serious: Yes (Death, Hospitalization)
  Sender: FDA-Public Use
  Company Number: JP-ORION CORPORATION ORION PHARMA-ENTC2020-0329

PATIENT
  Sex: Female

DRUGS (5)
  1. NEODOPASTON [Concomitant]
     Active Substance: CARBIDOPA\LEVODOPA
     Route: 065
  2. AZILECT [Concomitant]
     Active Substance: RASAGILINE MESYLATE
     Route: 065
  3. DOPACOL [Concomitant]
     Active Substance: CARBIDOPA\LEVODOPA
     Route: 065
  4. STALEVO [Suspect]
     Active Substance: CARBIDOPA\ENTACAPONE\LEVODOPA
     Indication: PARKINSON^S DISEASE
     Dosage: AT A DOSE OF 150MG (1DF:CARBIDOPA 5MG/ ENTACAPONE 100MG/LEVODOPA 50MG), 100MG (1DF:CARBIDOPA 10MG/EN
     Route: 048
     Dates: end: 20201107
  5. NEUPRO [Concomitant]
     Active Substance: ROTIGOTINE
     Route: 065

REACTIONS (3)
  - Pyrexia [Fatal]
  - Product prescribing error [Unknown]
  - Somnolence [Fatal]

NARRATIVE: CASE EVENT DATE: 20201105
